FAERS Safety Report 16780732 (Version 1)
Quarter: 2019Q3

REPORT INFORMATION
  Report Type: Spontaneous
  Country: US (occurrence: US)
  Receive Date: 20190717
  Receipt Date: 20190717
  Transmission Date: 20191005
  Serious: No
  Sender: FDA-Public Use
  Company Number: None

PATIENT
  Age: 33 Year
  Sex: Female

DRUGS (2)
  1. BOTOX [Suspect]
     Active Substance: ONABOTULINUMTOXINA
     Indication: NECK PAIN
     Dosage: ?          OTHER FREQUENCY:EVERY12WEEKS;?
     Route: 030
     Dates: start: 20190415, end: 20190415
  2. BOTOX [Suspect]
     Active Substance: ONABOTULINUMTOXINA
     Indication: TRIGEMINAL NEURALGIA
     Dosage: ?          OTHER FREQUENCY:EVERY12WEEKS;?
     Route: 030
     Dates: start: 20190415, end: 20190415

REACTIONS (2)
  - Deformity [None]
  - Drug ineffective [None]

NARRATIVE: CASE EVENT DATE: 20190415
